FAERS Safety Report 6235154-8 (Version None)
Quarter: 2009Q2

REPORT INFORMATION
  Report Type: 
  Country: None (occurrence: None)
  Receive Date: 20090618
  Receipt Date: 20090612
  Transmission Date: 20091009
  Serious: Yes (Life-Threatening, Hospitalization, Other)
  Sender: FDA-Public Use
  Company Number: CO-BAYER-200910027LA

PATIENT
  Age: 72 Year
  Sex: Male
  Weight: 77 kg

DRUGS (7)
  1. RIVAROXABAN 20MG OD OR WARFARIN OD (1, 2.5 OR 5MG) [Suspect]
     Indication: CEREBROVASCULAR ACCIDENT PROPHYLAXIS
     Route: 048
     Dates: start: 20080411, end: 20080818
  2. RIVAROXABAN 20MG OD OR WARFARIN OD (1, 2.5 OR 5MG) [Suspect]
     Route: 048
     Dates: start: 20080826, end: 20080901
  3. RIVAROXABAN 20MG OD OR WARFARIN OD (1, 2.5 OR 5MG) [Suspect]
     Route: 048
     Dates: start: 20081022, end: 20081026
  4. RIVAROXABAN 20MG OD OR WARFARIN OD (1, 2.5 OR 5MG) [Suspect]
     Route: 048
     Dates: start: 20090120, end: 20090208
  5. RIVAROXABAN 20MG OD OR WARFARIN OD (1, 2.5 OR 5MG) [Suspect]
     Route: 048
     Dates: start: 20080909, end: 20081017
  6. RIVAROXABAN 20MG OD OR WARFARIN OD (1, 2.5 OR 5MG) [Suspect]
     Route: 048
     Dates: end: 20090419
  7. ASPIRIN [Suspect]
     Indication: ANTICOAGULANT THERAPY
     Dosage: UNIT DOSE: 100 MG
     Route: 048
     Dates: start: 20080404, end: 20081107

REACTIONS (3)
  - POST PROCEDURAL HAEMORRHAGE [None]
  - RENAL FAILURE ACUTE [None]
  - SHOCK HAEMORRHAGIC [None]
